FAERS Safety Report 7683735-7 (Version None)
Quarter: 2011Q3

REPORT INFORMATION
  Report Type: 
  Country: None (occurrence: None)
  Receive Date: 20110815
  Receipt Date: 20110804
  Transmission Date: 20111222
  Serious: Yes (Hospitalization, Other)
  Sender: FDA-Public Use
  Company Number: BE-JNJFOC-20110705738

PATIENT
  Sex: Female
  Weight: 109 kg

DRUGS (43)
  1. PERFUSALGAM [Concomitant]
     Dates: start: 20110110, end: 20110117
  2. TUSSIPECT (COUGH AND COLD PREPARATIONS) [Concomitant]
     Dates: start: 20110203, end: 20110203
  3. TUSSIPECT (COUGH AND COLD PREPARATIONS) [Concomitant]
     Dates: start: 20110205, end: 20110205
  4. ENOXAPARIN SODIUM [Concomitant]
     Dates: start: 20110119
  5. PERFUSALGAM [Concomitant]
     Dates: start: 20110202, end: 20110202
  6. TRAMADOL HCL [Concomitant]
     Dates: start: 20110111, end: 20110111
  7. ULTRA K [Concomitant]
     Dates: start: 20110203, end: 20110203
  8. TUSSIPECT (COUGH AND COLD PREPARATIONS) [Concomitant]
     Dates: start: 20110112, end: 20110118
  9. TUSSIPECT (COUGH AND COLD PREPARATIONS) [Concomitant]
     Dates: start: 20110208, end: 20110209
  10. RIVAROXABAN [Suspect]
     Route: 048
     Dates: start: 20110110, end: 20110129
  11. LITICAN [Concomitant]
     Dates: start: 20110203, end: 20110204
  12. LITICAN [Concomitant]
     Dates: start: 20110205, end: 20110205
  13. ENOXAPARIN SODIUM [Concomitant]
     Dates: start: 20110110, end: 20110110
  14. ENOXAPARIN SODIUM [Concomitant]
     Dates: start: 20110607, end: 20110608
  15. ULTRA K [Concomitant]
     Dates: start: 20110204, end: 20110204
  16. ULTRA K [Concomitant]
     Dates: start: 20110113, end: 20110113
  17. DAFALGAN CODEINE [Concomitant]
     Dates: start: 20110609, end: 20110609
  18. RIVAROXABAN [Suspect]
     Indication: PULMONARY EMBOLISM
     Route: 048
     Dates: start: 20110323, end: 20110607
  19. ACEDICON [Concomitant]
     Dates: start: 20110114, end: 20110116
  20. TUSSIPECT (COUGH AND COLD PREPARATIONS) [Concomitant]
     Dates: start: 20110111, end: 20110111
  21. CONTRAMAL RETARD [Concomitant]
     Dates: start: 20110119
  22. RIVAROXABAN [Suspect]
     Route: 048
     Dates: start: 20110130, end: 20110131
  23. ENOXAPARIN SODIUM [Concomitant]
     Dates: start: 20110608, end: 20110608
  24. ENOXAPARIN SODIUM [Concomitant]
     Dates: start: 20110201, end: 20110322
  25. TRAMADOL HCL [Concomitant]
     Dates: start: 20110112, end: 20110112
  26. OLMESARTAN MEDOXOMIL [Concomitant]
     Dates: start: 20101201
  27. LITICAN [Concomitant]
     Dates: start: 20110111, end: 20110111
  28. DAFALGAN CODEINE [Concomitant]
     Dates: start: 20110117, end: 20110117
  29. ENOXAPARIN SODIUM [Concomitant]
     Dates: start: 20110609
  30. ENOXAPARIN SODIUM [Concomitant]
     Dates: start: 20110131, end: 20110131
  31. TRAMADOL HCL [Concomitant]
     Dates: start: 20110114, end: 20110114
  32. AUGMENTIN '125' [Concomitant]
     Dates: start: 20110111, end: 20110131
  33. ACEDICON [Concomitant]
     Dates: start: 20110117, end: 20110117
  34. MOVIPREP [Concomitant]
     Dates: start: 20110112, end: 20110118
  35. TUSSIPECT (COUGH AND COLD PREPARATIONS) [Concomitant]
     Dates: start: 20110207, end: 20110207
  36. AMLODIPINE BESYLATE [Concomitant]
     Dates: start: 20110117
  37. ALLOPURINOL [Concomitant]
     Dates: start: 20110113, end: 20110117
  38. LITICAN [Concomitant]
     Dates: start: 20110112, end: 20110112
  39. CONTRAMAL RETARD [Concomitant]
     Dates: start: 20110114, end: 20110118
  40. TRAMADOL HCL [Concomitant]
     Dates: start: 20110110, end: 20110111
  41. ACEDICON [Concomitant]
     Dates: start: 20110118, end: 20110118
  42. ACEDICON [Concomitant]
     Dates: start: 20110112, end: 20110113
  43. ULTRA K [Concomitant]
     Dates: start: 20110114, end: 20110114

REACTIONS (3)
  - VENA CAVA THROMBOSIS [None]
  - PNEUMONIA NECROTISING [None]
  - RENAL FAILURE ACUTE [None]
